FAERS Safety Report 6287524-X (Version None)
Quarter: 2009Q3

REPORT INFORMATION
  Report Type: 
  Country: None (occurrence: None)
  Receive Date: 20090727
  Receipt Date: 20090715
  Transmission Date: 20100115
  Serious: Yes (Other)
  Sender: FDA-Public Use
  Company Number: 2008AL012400

PATIENT
  Age: 78 Year
  Sex: Female

DRUGS (45)
  1. DIGOXIN [Suspect]
     Indication: ARRHYTHMIA
     Dosage: 0.125MG, DAILY, PO
     Route: 048
     Dates: start: 20081027, end: 20090124
  2. LEVOTHYROXINE SODIUM [Concomitant]
  3. LOVASATATIN [Concomitant]
  4. AMIODARONE HCL [Concomitant]
  5. PROMETHAZINE [Concomitant]
  6. ZOLPIDEM [Concomitant]
  7. MEXILETINE HYDROCHLORIDE [Concomitant]
  8. ZETIA [Concomitant]
  9. PHOSLO [Concomitant]
  10. ALLOPURINOL [Concomitant]
  11. METOPROLOL TARTRATE [Concomitant]
  12. GENTAMICIN [Concomitant]
  13. AMBIEN [Concomitant]
  14. MECLIZINE [Concomitant]
  15. RENAL SOFT GEL [Concomitant]
  16. NITROGLYCERIN [Concomitant]
  17. RENAGEL [Concomitant]
  18. MIDODRINE [Concomitant]
  19. CHERATUSSIUN [Concomitant]
  20. MAGOXIDE [Concomitant]
  21. SENSIPAR [Concomitant]
  22. ISOSORBIDE DINITRATE [Concomitant]
  23. TOPROL-XL [Concomitant]
  24. POTASSIUM CHLORIDE [Concomitant]
  25. METOLAZONE [Concomitant]
  26. TORSEMIDE [Concomitant]
  27. PLAVIX [Concomitant]
  28. FOLGARD [Concomitant]
  29. CLOPIDOGREL [Concomitant]
  30. DIOVAN [Concomitant]
  31. HYDRALAZINE HCL [Concomitant]
  32. FOLPEX [Concomitant]
  33. GALATRO [Concomitant]
  34. ASPIRIN [Concomitant]
  35. COMPAZINE [Concomitant]
  36. ATROPINE [Concomitant]
  37. EPOGEN [Concomitant]
  38. LORAZEPAM [Concomitant]
  39. PRILOSEC [Concomitant]
  40. NITROGLYCERIN [Concomitant]
  41. MULTI-VITAMINS [Concomitant]
  42. OXYGEN [Concomitant]
  43. ROXANOL [Concomitant]
  44. TYLENOL (CAPLET) [Concomitant]
  45. SYNTHROID [Concomitant]

REACTIONS (6)
  - DIZZINESS [None]
  - ILL-DEFINED DISORDER [None]
  - MULTIPLE INJURIES [None]
  - NAUSEA [None]
  - PALPITATIONS [None]
  - THERAPEUTIC AGENT TOXICITY [None]
